FAERS Safety Report 6710179-4 (Version None)
Quarter: 2010Q2

REPORT INFORMATION
  Report Type: 
  Country: None (occurrence: None)
  Receive Date: 20100504
  Receipt Date: 20100426
  Transmission Date: 20101027
  Serious: Yes (Death, Other)
  Sender: FDA-Public Use
  Company Number: IT-BRISTOL-MYERS SQUIBB COMPANY-15078454

PATIENT
  Age: 8 Month
  Sex: Female
  Weight: 2 kg

DRUGS (4)
  1. CARBOPLATIN [Suspect]
     Indication: NEPHROBLASTOMA
     Dosage: DAY 1, 2, AND 3
  2. CARBOPLATIN [Suspect]
     Indication: NEUROBLASTOMA
     Dosage: DAY 1, 2, AND 3
  3. ETOPOSIDE [Suspect]
     Indication: NEPHROBLASTOMA
     Dosage: DAY 1, 2, AND 3
  4. ETOPOSIDE [Suspect]
     Indication: NEUROBLASTOMA
     Dosage: DAY 1, 2, AND 3

REACTIONS (4)
  - DISSEMINATED INTRAVASCULAR COAGULATION [None]
  - MALIGNANT NEOPLASM PROGRESSION [None]
  - PANCYTOPENIA [None]
  - PYREXIA [None]
